FAERS Safety Report 4597574-7 (Version None)
Quarter: 2005Q1

REPORT INFORMATION
  Report Type: 
  Country: None (occurrence: None)
  Receive Date: 20050228
  Receipt Date: 20050228
  Transmission Date: 20050727
  Serious: Yes (Death)
  Sender: FDA-Public Use
  Company Number: None

PATIENT
  Age: 7 Year
  Sex: Male

DRUGS (1)
  1. ADDERALL 10 [Suspect]

REACTIONS (2)
  - ARRHYTHMIA [None]
  - BICUSPID AORTIC VALVE [None]
